FAERS Safety Report 5824626-3 (Version None)
Quarter: 2008Q3

REPORT INFORMATION
  Report Type: 
  Country: None (occurrence: None)
  Receive Date: 20080728
  Receipt Date: 20080715
  Transmission Date: 20090109
  Serious: Yes (Hospitalization)
  Sender: FDA-Public Use
  Company Number: US-ELI_LILLY_AND_COMPANY-US200806003422

PATIENT
  Sex: Female

DRUGS (13)
  1. FORTEO [Suspect]
     Indication: OSTEOPOROSIS
     Dosage: 20 UG, DAILY (1/D)
     Dates: start: 20080115
  2. CALCIUM [Concomitant]
     Dosage: 1500 MG, DAILY (1/D)
  3. VITAMIN D [Concomitant]
     Dosage: 1000 IU, UNK
  4. PREDNISONE [Concomitant]
     Indication: POLYMYALGIA RHEUMATICA
     Dosage: 20 MG, UNK
     Dates: start: 20070101
  5. PREDNISONE [Concomitant]
     Dosage: 5 MG, UNK
  6. PREDNISONE [Concomitant]
     Dosage: 20 MG, UNK
  7. PREDNISONE [Concomitant]
     Dosage: 5 MG, UNK
  8. ADVAIR DISKUS 100/50 [Concomitant]
  9. COREG [Concomitant]
  10. OXYCODONE HCL [Concomitant]
  11. DYAZIDE [Concomitant]
  12. VYTORIN [Concomitant]
  13. LUNESTA [Concomitant]

REACTIONS (2)
  - ATRIAL FIBRILLATION [None]
  - BUNDLE BRANCH BLOCK LEFT [None]
